FAERS Safety Report 6860282-3 (Version None)
Quarter: 2010Q3

REPORT INFORMATION
  Report Type: 
  Country: None (occurrence: None)
  Receive Date: 20100720
  Receipt Date: 20100708
  Transmission Date: 20110219
  Serious: Yes (Hospitalization, Other)
  Sender: FDA-Public Use
  Company Number: PHHY2010JP37333

PATIENT
  Age: 90 Year
  Sex: Female

DRUGS (3)
  1. DIOVAN HCT [Suspect]
     Indication: HYPERTENSION
     Dosage: 1 DF, QD
     Route: 048
  2. FAMOSTAGINE [Concomitant]
     Route: 048
  3. TEGRETOL [Concomitant]
     Route: 048

REACTIONS (2)
  - HYPERKALAEMIA [None]
  - SUBARACHNOID HAEMORRHAGE [None]
